FAERS Safety Report 6354526-4 (Version None)
Quarter: 2009Q3

REPORT INFORMATION
  Report Type: 
  Country: None (occurrence: None)
  Receive Date: 20090914
  Receipt Date: 20090909
  Transmission Date: 20100115
  Serious: Yes (Other)
  Sender: FDA-Public Use
  Company Number: US-BRISTOL-MYERS SQUIBB COMPANY-14773246

PATIENT
  Age: 54 Year
  Sex: Male
  Weight: 75 kg

DRUGS (5)
  1. METFORMIN HCL [Suspect]
     Indication: DIABETES MELLITUS
     Route: 048
     Dates: start: 20070101
  2. GLYBURIDE [Suspect]
     Indication: DIABETES MELLITUS
     Dosage: 2003-2007 2007-ONG
     Route: 048
     Dates: start: 20030101
  3. INSULIN [Suspect]
     Indication: DIABETES MELLITUS
     Dates: start: 20050101, end: 20070101
  4. PREDNISONE [Suspect]
     Indication: PSORIASIS
     Dates: start: 20050101
  5. DIABETA [Suspect]
     Indication: DIABETES MELLITUS
     Dates: start: 20030101

REACTIONS (2)
  - BLOOD GLUCOSE INCREASED [None]
  - WEIGHT DECREASED [None]
